FAERS Safety Report 18623930 (Version 1)
Quarter: 2020Q4

REPORT INFORMATION
  Report Type: Spontaneous
  Country: US (occurrence: US)
  Receive Date: 20201216
  Receipt Date: 20201216
  Transmission Date: 20210114
  Serious: No
  Sender: FDA-Public Use
  Company Number: US-LUPIN PHARMACEUTICALS INC.-2020-06213

PATIENT
  Age: 63 Year
  Sex: Male

DRUGS (4)
  1. CEFAZOLIN [Concomitant]
     Active Substance: CEFAZOLIN
     Indication: DEVICE RELATED INFECTION
     Dosage: UNK
     Route: 065
  2. CEFAZOLIN [Concomitant]
     Active Substance: CEFAZOLIN
     Indication: STAPHYLOCOCCAL INFECTION
  3. RIFABUTIN. [Suspect]
     Active Substance: RIFABUTIN
     Indication: STAPHYLOCOCCAL INFECTION
  4. RIFABUTIN. [Suspect]
     Active Substance: RIFABUTIN
     Indication: DEVICE RELATED INFECTION
     Dosage: 300 MILLIGRAM, QD
     Route: 048

REACTIONS (1)
  - Off label use [Unknown]
